FAERS Safety Report 7555981-4 (Version None)
Quarter: 2011Q2

REPORT INFORMATION
  Report Type: 
  Country: None (occurrence: None)
  Receive Date: 20110619
  Receipt Date: 20110607
  Transmission Date: 20111010
  Serious: Yes (Hospitalization, Other)
  Sender: FDA-Public Use
  Company Number: US-ELI_LILLY_AND_COMPANY-US201106001852

PATIENT
  Sex: Female

DRUGS (9)
  1. OXYCONTIN [Concomitant]
     Dosage: 40 MG, TID
  2. VITAMIN A AND D [Concomitant]
     Dosage: UNK, QD
  3. FAMCICLOVIR [Concomitant]
     Dosage: 250 MG, TID
  4. FORTEO [Suspect]
     Indication: OSTEOPOROSIS
     Dosage: 20 UG, QD
     Dates: start: 20110501
  5. FORTEO [Suspect]
     Dosage: 20 UG, QD
  6. SERTRALINE HYDROCHLORIDE [Concomitant]
  7. VITAMIN D [Concomitant]
     Dosage: 5000 IU, QD
  8. OXYCODONE HCL [Concomitant]
     Dosage: 15 MG, TID
  9. LIVEROIL [Concomitant]

REACTIONS (6)
  - DEHYDRATION [None]
  - WEIGHT DECREASED [None]
  - HOSPITALISATION [None]
  - DIARRHOEA [None]
  - SKIN TURGOR DECREASED [None]
  - COLITIS [None]
